FAERS Safety Report 24842768 (Version 1)
Quarter: 2025Q1

REPORT INFORMATION
  Report Type: Spontaneous
  Country: US (occurrence: US)
  Receive Date: 20250115
  Receipt Date: 20250115
  Transmission Date: 20250409
  Serious: No
  Sender: SANOFI AVENTIS
  Company Number: US-SA-2025SA010482

PATIENT
  Age: 39 Year
  Sex: Male

DRUGS (22)
  1. DUPIXENT [Suspect]
     Active Substance: DUPILUMAB
     Indication: Eosinophilic oesophagitis
     Dosage: 300MG/2ML; QW
     Route: 058
     Dates: start: 20241204
  2. CHLORHEXIDINE GLUCONATE [Concomitant]
     Active Substance: CHLORHEXIDINE GLUCONATE
  3. CHOLECALCIFEROL [Concomitant]
     Active Substance: CHOLECALCIFEROL
  4. CLOBETASOL [Concomitant]
     Active Substance: CLOBETASOL
  5. DIVALPROEX SODIUM [Concomitant]
     Active Substance: DIVALPROEX SODIUM
  6. DIVALPROEX SODIUM [Concomitant]
     Active Substance: DIVALPROEX SODIUM
  7. DOCUSATE [Concomitant]
     Active Substance: DOCUSATE
  8. EVENITY [Concomitant]
     Active Substance: ROMOSOZUMAB-AQQG
  9. GUAIFENESIN [Concomitant]
     Active Substance: GUAIFENESIN
  10. A-HYDROCORT [Concomitant]
     Active Substance: HYDROCORTISONE SODIUM SUCCINATE
  11. IBUPROFEN [Concomitant]
     Active Substance: IBUPROFEN
  12. ALBUTEROL\IPRATROPIUM [Concomitant]
     Active Substance: ALBUTEROL\IPRATROPIUM
  13. KETOCONAZOLE [Concomitant]
     Active Substance: KETOCONAZOLE
  14. LEVOTHYROXINE [Concomitant]
     Active Substance: LEVOTHYROXINE
  15. MELATONIN [Concomitant]
     Active Substance: MELATONIN
  16. MINERAL OIL [Concomitant]
     Active Substance: MINERAL OIL
  17. OLANZAPINE [Concomitant]
     Active Substance: OLANZAPINE
  18. OLANZAPINE [Concomitant]
     Active Substance: OLANZAPINE
  19. PANTOPRAZOLE [Concomitant]
     Active Substance: PANTOPRAZOLE
  20. POLYETHYLENE GLYCOL [Concomitant]
     Active Substance: POLYETHYLENE GLYCOL
  21. PREDNISONE [Concomitant]
     Active Substance: PREDNISONE
  22. SUDAFED NASAL DECONGESTANT MAXIMUM STRENGTH [Concomitant]
     Active Substance: PSEUDOEPHEDRINE HYDROCHLORIDE

REACTIONS (1)
  - Atrial septal defect [Unknown]
